FAERS Safety Report 5848999-0 (Version None)
Quarter: 2008Q3

REPORT INFORMATION
  Report Type: 
  Country: None (occurrence: None)
  Receive Date: 20080814
  Receipt Date: 20080729
  Transmission Date: 20090109
  Serious: Yes (Other)
  Sender: FDA-Public Use
  Company Number: CHPA2008US13343

PATIENT
  Sex: Female

DRUGS (1)
  1. BENEFIBER FIBER SUPP VIT B + FOLIC ACID (WHEAT DEXTRIN) UNKNOWN [Suspect]
     Dosage: ORAL
     Route: 048

REACTIONS (1)
  - RENAL DISORDER [None]
